FAERS Safety Report 12379465 (Version 1)
Quarter: 2016Q2

REPORT INFORMATION
  Report Type: Report from Study
  Country: US (occurrence: US)
  Receive Date: 20160517
  Receipt Date: 20160517
  Transmission Date: 20160815
  Serious: Yes (Other)
  Sender: FDA-Public Use
  Company Number: US-AMGEN-USASL2016061788

PATIENT
  Age: 47 Year
  Sex: Female

DRUGS (2)
  1. ENBREL [Suspect]
     Active Substance: ETANERCEPT
     Indication: RHEUMATOID ARTHRITIS
     Dosage: 50 MG, QWK
     Route: 065
     Dates: start: 1990
  2. CIMZIA [Concomitant]
     Active Substance: CERTOLIZUMAB PEGOL
     Indication: PRODUCT USED FOR UNKNOWN INDICATION
     Dosage: UNK
     Route: 065

REACTIONS (11)
  - Headache [Unknown]
  - Nervous system disorder [Unknown]
  - Therapeutic response decreased [Unknown]
  - Cardiac disorder [Unknown]
  - Rheumatoid arthritis [Unknown]
  - Ischaemic stroke [Unknown]
  - Visual impairment [Unknown]
  - Hypertension [Unknown]
  - Pain [Unknown]
  - Drug tolerance [Unknown]
  - Haemoglobin decreased [Unknown]

NARRATIVE: CASE EVENT DATE: 1990
